FAERS Safety Report 6458366-7 (Version None)
Quarter: 2009Q4

REPORT INFORMATION
  Report Type: 
  Country: None (occurrence: None)
  Receive Date: 20091125
  Receipt Date: 20090716
  Transmission Date: 20100525
  Serious: No
  Sender: FDA-Public Use
  Company Number: US-AMGEN-KDL356145

PATIENT
  Sex: Female

DRUGS (4)
  1. ENBREL [Suspect]
     Indication: PSORIATIC ARTHROPATHY
     Dates: start: 20090201
  2. BYETTA [Concomitant]
  3. BENICAR [Concomitant]
  4. ZOLOFT [Concomitant]

REACTIONS (1)
  - INJECTION SITE PAIN [None]
